FAERS Safety Report 5839349-4 (Version None)
Quarter: 2008Q3

REPORT INFORMATION
  Report Type: 
  Country: None (occurrence: None)
  Receive Date: 20080806
  Receipt Date: 20080725
  Transmission Date: 20090109
  Serious: No
  Sender: FDA-Public Use
  Company Number: 02100-JPN-07-0327

PATIENT
  Age: 61 Year
  Sex: Female
  Weight: 57 kg

DRUGS (10)
  1. PLETAL [Suspect]
     Indication: CEREBRAL INFARCTION
     Dosage: 100 MG, BID ORAL
     Route: 048
     Dates: start: 20041215
  2. PLETAL [Suspect]
     Indication: CEREBRAL INFARCTION
     Dosage: 81 MG, QD ORAL
     Route: 048
     Dates: start: 20041215
  3. CETAPRIL (ALACEPRIL) TABLET [Concomitant]
  4. GLIMICRON (GLICLAZIDE) TABLET [Concomitant]
  5. SAIREI-TO (HERBAL EXTRACTS NOS) POWDER [Concomitant]
  6. AMLODIN OD (AMLODIPINE BESILATE) TABLET [Concomitant]
  7. MEVALOTIN (MEVALOTIN) TABLET [Concomitant]
  8. TRICOR (FENOFIBRATE) CAPSULE [Concomitant]
  9. KINEDAK (EPALRESTAT) TABLET [Concomitant]
  10. SEIBULE (MIGLITOL) TABLET [Concomitant]

REACTIONS (4)
  - BLOOD POTASSIUM INCREASED [None]
  - DIABETES MELLITUS INADEQUATE CONTROL [None]
  - DIABETIC RETINOPATHY [None]
  - HYPERPHAGIA [None]
